FAERS Safety Report 5723298-6 (Version None)
Quarter: 2008Q2

REPORT INFORMATION
  Report Type: 
  Country: None (occurrence: None)
  Receive Date: 20080430
  Receipt Date: 20080305
  Transmission Date: 20081010
  Serious: No
  Sender: FDA-Public Use
  Company Number: US-ASTRAZENECA-2008UW04504

PATIENT
  Age: 70 Year
  Sex: Female
  Weight: 48.9 kg

DRUGS (2)
  1. NEXIUM [Suspect]
     Indication: GASTROOESOPHAGEAL REFLUX DISEASE
     Route: 048
     Dates: start: 20080101
  2. VITAMINS [Concomitant]

REACTIONS (3)
  - CRYING [None]
  - DIARRHOEA [None]
  - WEIGHT DECREASED [None]
